FAERS Safety Report 9191551 (Version 1)
Quarter: 2013Q1

REPORT INFORMATION
  Report Type: Spontaneous
  Country: RU (occurrence: RU)
  Receive Date: 20130326
  Receipt Date: 20130326
  Transmission Date: 20140127
  Serious: Yes (Death, Hospitalization)
  Sender: FDA-Public Use
  Company Number: RU-ACTELION-A-CH2013-80817

PATIENT
  Age: 21 Year
  Sex: Female

DRUGS (4)
  1. TRACLEER [Suspect]
     Indication: PULMONARY ARTERIAL HYPERTENSION
     Dosage: 125 MG, BID
     Route: 048
     Dates: start: 201211, end: 20121220
  2. TRACLEER [Suspect]
     Dosage: 62.5 MG, BID
     Route: 048
     Dates: start: 201210, end: 201211
  3. VENTAVIS BAYER SCHERING [Suspect]
     Indication: PULMONARY ARTERIAL HYPERTENSION
     Route: 055
  4. SILDENAFIL [Concomitant]

REACTIONS (3)
  - Cardiovascular insufficiency [Fatal]
  - Concomitant disease aggravated [Fatal]
  - Surgery [Unknown]
